FAERS Safety Report 25462132 (Version 3)
Quarter: 2025Q4

REPORT INFORMATION
  Report Type: Spontaneous
  Country: JP (occurrence: JP)
  Receive Date: 20250620
  Receipt Date: 20251015
  Transmission Date: 20260117
  Serious: Yes (Other)
  Sender: PFIZER
  Company Number: JP-PFIZER INC-PV202500072686

PATIENT
  Age: 6 Decade
  Sex: Male

DRUGS (5)
  1. SIROLIMUS [Suspect]
     Active Substance: SIROLIMUS
     Indication: Lymphangioma
     Dosage: 2 MG, 1X/DAY-IN THE MORNING
     Route: 048
     Dates: start: 20250513, end: 20250519
  2. SIROLIMUS [Suspect]
     Active Substance: SIROLIMUS
     Indication: Gorham^s disease
     Dosage: 2 DOSAGE FORM, IN 1 DAY
     Route: 048
     Dates: start: 20250527
  3. SIROLIMUS [Suspect]
     Active Substance: SIROLIMUS
     Dosage: 2 DOSAGE FORMS,1 D
     Route: 048
     Dates: start: 202505
  4. ROSUVASTATIN [Concomitant]
     Active Substance: ROSUVASTATIN
     Dosage: 4 DF, DAILY
  5. ACETAMINOPHEN [Concomitant]
     Active Substance: ACETAMINOPHEN
     Dosage: UNK

REACTIONS (26)
  - Syncope [Unknown]
  - Cough [Unknown]
  - Hypohidrosis [Unknown]
  - Injection site bruising [Unknown]
  - Urine output increased [Unknown]
  - Pollakiuria [Unknown]
  - Condition aggravated [Unknown]
  - Back pain [Unknown]
  - Spinal pain [Unknown]
  - Muscular weakness [Unknown]
  - Muscle atrophy [Unknown]
  - Insomnia [Unknown]
  - Taste disorder [Unknown]
  - Head discomfort [Unknown]
  - Eye pain [Unknown]
  - Constipation [Unknown]
  - Haemorrhage subcutaneous [Unknown]
  - Myalgia [Unknown]
  - Chest discomfort [Unknown]
  - Weight decreased [Unknown]
  - Pleural effusion [Unknown]
  - Therapeutic product effect incomplete [Unknown]
  - Blood zinc decreased [Unknown]
  - Therapeutic response unexpected [Unknown]
  - Inappropriate schedule of product administration [Unknown]
  - Drug ineffective [Unknown]

NARRATIVE: CASE EVENT DATE: 20250101
